FAERS Safety Report 19595156 (Version 2)
Quarter: 2021Q3

REPORT INFORMATION
  Report Type: Spontaneous
  Country: US (occurrence: US)
  Receive Date: 20210722
  Receipt Date: 20210728
  Transmission Date: 20211014
  Serious: Yes (Hospitalization)
  Sender: FDA-Public Use
  Company Number: US-TEVA-2021-US-1933590

PATIENT
  Age: 16 Year
  Sex: Female
  Weight: 54 kg

DRUGS (6)
  1. FLUOXETINE [Concomitant]
     Active Substance: FLUOXETINE HYDROCHLORIDE
     Indication: PRODUCT USED FOR UNKNOWN INDICATION
     Route: 065
  2. ARIPIPRAZOLE. [Concomitant]
     Active Substance: ARIPIPRAZOLE
     Indication: PRODUCT USED FOR UNKNOWN INDICATION
     Route: 065
  3. TRAMADOL. [Suspect]
     Active Substance: TRAMADOL
     Indication: INTENTIONAL OVERDOSE
     Dosage: 30?40 TABLETS (UP TO 2000MG)
     Route: 048
  4. MELATONIN [Concomitant]
     Active Substance: MELATONIN
     Indication: PRODUCT USED FOR UNKNOWN INDICATION
     Route: 065
  5. ALPRAZOLAM. [Concomitant]
     Active Substance: ALPRAZOLAM
     Indication: PRODUCT USED FOR UNKNOWN INDICATION
     Route: 065
  6. HYDROXYZINE [Concomitant]
     Active Substance: HYDROXYZINE HYDROCHLORIDE
     Indication: PRODUCT USED FOR UNKNOWN INDICATION
     Route: 065

REACTIONS (12)
  - Intentional overdose [Unknown]
  - Clonus [Recovering/Resolving]
  - Hypertension [Unknown]
  - Nausea [Unknown]
  - Cold sweat [Recovered/Resolved]
  - Gait disturbance [Recovering/Resolving]
  - Confusional state [Recovering/Resolving]
  - Acute kidney injury [Recovered/Resolved]
  - Pallor [Recovered/Resolved]
  - Mental status changes [Recovering/Resolving]
  - Seizure [Recovered/Resolved]
  - Tachycardia [Unknown]
